FAERS Safety Report 19994330 (Version 7)
Quarter: 2022Q1

REPORT INFORMATION
  Report Type: Report from Study
  Country: PE (occurrence: PE)
  Receive Date: 20211026
  Receipt Date: 20220303
  Transmission Date: 20220423
  Serious: Yes (Death, Hospitalization, Other)
  Sender: FDA-Public Use
  Company Number: PE-NOVARTISPH-NVSC2021PE066993

PATIENT
  Age: 72 Year
  Sex: Female

DRUGS (2)
  1. TASIGNA [Suspect]
     Active Substance: NILOTINIB
     Indication: Chronic myeloid leukaemia
     Dosage: 400 MG, BID (800 MG, QD)
     Route: 048
     Dates: start: 20191219
  2. TASIGNA [Suspect]
     Active Substance: NILOTINIB
     Dosage: 400 MG, QD
     Route: 048
     Dates: start: 20191219

REACTIONS (14)
  - COVID-19 [Fatal]
  - Respiratory disorder [Unknown]
  - Glioma [Unknown]
  - Second primary malignancy [Unknown]
  - Hypertension [Recovering/Resolving]
  - Gait disturbance [Not Recovered/Not Resolved]
  - Affective disorder [Unknown]
  - Incorrect dose administered [Unknown]
  - Urinary incontinence [Unknown]
  - Fall [Unknown]
  - Cytogenetic analysis abnormal [Unknown]
  - Headache [Recovering/Resolving]
  - Abdominal pain [Unknown]
  - Abdominal pain upper [Unknown]

NARRATIVE: CASE EVENT DATE: 20211001
